FAERS Safety Report 6782361-1 (Version None)
Quarter: 2010Q2

REPORT INFORMATION
  Report Type: 
  Country: None (occurrence: None)
  Receive Date: 20100621
  Receipt Date: 20100607
  Transmission Date: 20101027
  Serious: Yes (Hospitalization)
  Sender: FDA-Public Use
  Company Number: DE-MYLANLABS-2009S1005287

PATIENT
  Age: 81 Year
  Sex: Female
  Weight: 76.5 kg

DRUGS (9)
  1. BISOPROLOL [Suspect]
     Indication: HYPERTENSION
     Dosage: DOSEN/APPLIKATION: 5MG-0-2.5MG
     Route: 048
     Dates: start: 20000101, end: 20081113
  2. PENTAERYTHRITOL TETRANITRATE [Suspect]
     Indication: CORONARY ARTERY DISEASE
     Route: 048
     Dates: start: 20020101, end: 20081114
  3. SELEGILINE [Suspect]
     Indication: PARKINSON'S DISEASE
     Route: 048
     Dates: start: 20070101
  4. REQUIP [Suspect]
     Indication: PARKINSON'S DISEASE
     Route: 048
     Dates: start: 20070101
  5. RAMIPLUS AL [Suspect]
     Indication: HYPERTENSION
     Route: 048
     Dates: start: 19990101
  6. ACETYLSALICYLIC ACID [Concomitant]
     Indication: CORONARY ARTERY DISEASE
     Route: 048
     Dates: start: 19900101, end: 20081114
  7. SIMVABETA [Concomitant]
     Indication: DYSLIPIDAEMIA
     Route: 048
     Dates: start: 20000101
  8. MAGNETRANS /00552801/ [Concomitant]
     Indication: PARKINSON'S DISEASE
     Route: 048
     Dates: start: 20070101, end: 20081114
  9. DOPPELHERZ /00110502/ [Concomitant]
     Indication: ARTHRALGIA
     Route: 048
     Dates: start: 20060101, end: 20081114

REACTIONS (2)
  - BRADYCARDIA [None]
  - HYPOTENSION [None]
